FAERS Safety Report 23978383 (Version 3)
Quarter: 2024Q3

REPORT INFORMATION
  Report Type: Spontaneous
  Country: US (occurrence: US)
  Receive Date: 20240614
  Receipt Date: 20240912
  Transmission Date: 20241017
  Serious: No
  Sender: BRISTOL MYERS SQUIBB
  Company Number: US-BRISTOL-MYERS SQUIBB COMPANY-2024-096388

PATIENT
  Age: 71 Year
  Sex: Male
  Weight: 77.11 kg

DRUGS (11)
  1. OPDIVO [Suspect]
     Active Substance: NIVOLUMAB
     Indication: Melanoma recurrent
     Route: 042
  2. YERVOY [Suspect]
     Active Substance: IPILIMUMAB
     Indication: Melanoma recurrent
     Route: 042
  3. LIPITOR [Concomitant]
     Active Substance: ATORVASTATIN CALCIUM
     Indication: Product used for unknown indication
  4. FISH OIL [Concomitant]
     Active Substance: FISH OIL
     Indication: Product used for unknown indication
  5. OSTEO B PLUS [Concomitant]
     Indication: Product used for unknown indication
  6. GLUCOSAMINE HYDROCHLORIDE [Concomitant]
     Active Substance: GLUCOSAMINE HYDROCHLORIDE
     Indication: Product used for unknown indication
  7. CHONDROITIN [FERROPOLICHONDRUM] [Concomitant]
     Indication: Product used for unknown indication
  8. CALCIUM\CHOLECALCIFEROL [Concomitant]
     Active Substance: CALCIUM\CHOLECALCIFEROL
     Indication: Product used for unknown indication
  9. HERBALS\TURMERIC [Concomitant]
     Active Substance: HERBALS\TURMERIC
     Indication: Product used for unknown indication
  10. MAGNESIUM CITRATE [Concomitant]
     Active Substance: MAGNESIUM CITRATE
     Indication: Product used for unknown indication
  11. GREEN LIPPED MUSSEL [ASCORBIC ACID;PERNA CANALICULUS EXTRACT] [Concomitant]
     Indication: Product used for unknown indication

REACTIONS (6)
  - Headache [Unknown]
  - Influenza like illness [Unknown]
  - Chills [Unknown]
  - Dizziness [Unknown]
  - Nasopharyngitis [Unknown]
  - Hypersomnia [Unknown]
